FAERS Safety Report 6795652-5 (Version None)
Quarter: 2010Q2

REPORT INFORMATION
  Report Type: 
  Country: None (occurrence: None)
  Receive Date: 20100625
  Receipt Date: 20100617
  Transmission Date: 20101027
  Serious: Yes (Other)
  Sender: FDA-Public Use
  Company Number: CA-MERCK-1006USA02841

PATIENT
  Age: 82 Year
  Sex: Female

DRUGS (4)
  1. FOSAMAX [Suspect]
     Route: 048
  2. ASPIRIN [Concomitant]
     Route: 065
  3. CLONAZEPAM [Concomitant]
     Route: 065
  4. GABAPENTIN [Concomitant]
     Route: 065

REACTIONS (2)
  - APPARENT DEATH [None]
  - CARDIAC DISORDER [None]
